FAERS Safety Report 22196275 (Version 2)
Quarter: 2023Q2

REPORT INFORMATION
  Report Type: Spontaneous
  Country: US (occurrence: US)
  Receive Date: 20230411
  Receipt Date: 20230420
  Transmission Date: 20230721
  Serious: Yes (Disabling, Other)
  Sender: FDA-Public Use
  Company Number: None

PATIENT
  Age: 58 Year
  Sex: Female

DRUGS (28)
  1. ARIPIPRAZOLE [Suspect]
     Active Substance: ARIPIPRAZOLE
     Indication: Depression
     Dosage: UNK
     Route: 065
  2. ARIPIPRAZOLE [Suspect]
     Active Substance: ARIPIPRAZOLE
     Indication: Mood swings
     Dosage: UNK
     Route: 065
  3. DULOXETINE HYDROCHLORIDE [Suspect]
     Active Substance: DULOXETINE HYDROCHLORIDE
     Indication: Bipolar II disorder
     Dosage: UNK
     Route: 065
  4. DULOXETINE HYDROCHLORIDE [Suspect]
     Active Substance: DULOXETINE HYDROCHLORIDE
     Indication: Bipolar disorder
     Dosage: 120 MILLIGRAM, QD (EVERY 1 DAY)
     Route: 065
  5. DULOXETINE HYDROCHLORIDE [Suspect]
     Active Substance: DULOXETINE HYDROCHLORIDE
     Indication: Mood swings
     Dosage: UNK (TAPERED)
     Route: 065
  6. DULOXETINE HYDROCHLORIDE [Suspect]
     Active Substance: DULOXETINE HYDROCHLORIDE
     Indication: Depression
  7. GABAPENTIN [Suspect]
     Active Substance: GABAPENTIN
     Indication: Mood swings
     Dosage: 3200 MILLIGRAM, QD (EVERY 1 DAY)
     Route: 065
  8. GABAPENTIN [Suspect]
     Active Substance: GABAPENTIN
     Indication: Bipolar II disorder
     Dosage: UNK (TAPERED)
     Route: 065
  9. GABAPENTIN [Suspect]
     Active Substance: GABAPENTIN
     Indication: Bipolar disorder
  10. LAMOTRIGINE [Suspect]
     Active Substance: LAMOTRIGINE
     Indication: Bipolar II disorder
     Dosage: 325 MILLIGRAM, QD (EVERY 1 DAY)
     Route: 065
  11. LAMOTRIGINE [Suspect]
     Active Substance: LAMOTRIGINE
     Indication: Mood swings
     Dosage: 300 MILLIGRAM, QD (EVERY 1 DAY)
     Route: 065
  12. LAMOTRIGINE [Suspect]
     Active Substance: LAMOTRIGINE
     Indication: Bipolar disorder
     Dosage: 75 MG/DAY
     Route: 065
  13. LAMOTRIGINE [Suspect]
     Active Substance: LAMOTRIGINE
     Dosage: 35 MG/DAY
     Route: 065
  14. OLANZAPINE [Suspect]
     Active Substance: OLANZAPINE
     Indication: Depression
     Dosage: UNK, (OVER 10 YEARS)
     Route: 065
  15. QUETIAPINE FUMARATE [Suspect]
     Active Substance: QUETIAPINE FUMARATE
     Indication: Depression
     Dosage: UNK
     Route: 065
  16. CITALOPRAM [Suspect]
     Active Substance: CITALOPRAM HYDROBROMIDE
     Indication: Depression
     Dosage: UNK
     Route: 065
  17. CITALOPRAM [Suspect]
     Active Substance: CITALOPRAM HYDROBROMIDE
     Indication: Seizure
  18. BUPROPION [Suspect]
     Active Substance: BUPROPION
     Indication: Bipolar II disorder
     Dosage: 450 MILLIGRAM, QD (EVERY 1 DAY)
     Route: 065
  19. BUPROPION [Suspect]
     Active Substance: BUPROPION
     Indication: Mood swings
     Dosage: UNK (TAPERED)
     Route: 065
  20. BUPROPION [Suspect]
     Active Substance: BUPROPION
     Indication: Bipolar disorder
  21. PHENYTOIN [Suspect]
     Active Substance: PHENYTOIN
     Indication: Depression
     Dosage: UNK
     Route: 065
  22. PHENYTOIN [Suspect]
     Active Substance: PHENYTOIN
     Indication: Seizure
  23. RISPERIDONE [Suspect]
     Active Substance: RISPERIDONE
     Indication: Depression
     Dosage: UNK
     Route: 065
  24. TRAZODONE [Suspect]
     Active Substance: TRAZODONE HYDROCHLORIDE
     Indication: Bipolar disorder
     Dosage: 50 MILLIGRAM, HS (AT BEDTIME AS NEEDED)
     Route: 065
  25. TRAZODONE [Suspect]
     Active Substance: TRAZODONE HYDROCHLORIDE
     Indication: Bipolar II disorder
  26. TRAZODONE [Suspect]
     Active Substance: TRAZODONE HYDROCHLORIDE
     Indication: Mood swings
  27. VALPROIC ACID [Suspect]
     Active Substance: VALPROIC ACID
     Indication: Depression
     Dosage: UNK
     Route: 065
  28. ZIPRASIDONE [Suspect]
     Active Substance: ZIPRASIDONE
     Indication: Depression
     Dosage: UNK OVER 10 YEARS
     Route: 065

REACTIONS (4)
  - Tardive dyskinesia [Recovered/Resolved]
  - Chorea [Unknown]
  - Drug ineffective [Unknown]
  - Off label use [Unknown]
